FAERS Safety Report 8103577-8 (Version None)
Quarter: 2012Q1

REPORT INFORMATION
  Report Type: 
  Country: None (occurrence: None)
  Receive Date: 20120201
  Receipt Date: 20120131
  Transmission Date: 20120608
  Serious: Yes (Hospitalization)
  Sender: FDA-Public Use
  Company Number: PHHO2011FI00948

PATIENT
  Sex: Male
  Weight: 84.6 kg

DRUGS (4)
  1. ILARIS [Suspect]
     Indication: OSTEOARTHRITIS
     Dosage: CODE NOT BROKEN
     Dates: start: 20101213
  2. NAPROXEN [Suspect]
     Indication: OSTEOARTHRITIS
     Dosage: CODE NOT BROKEN
     Dates: start: 20101213
  3. OMEPRAZOLE [Suspect]
     Indication: OSTEOARTHRITIS
     Dosage: CODE NOT BROKEN
     Dates: start: 20101213
  4. BLINDED NO TREATMENT RECEIVED [Suspect]
     Indication: OSTEOARTHRITIS
     Dosage: CODE NOT BROKEN
     Dates: start: 20101213

REACTIONS (1)
  - TOOTH INFECTION [None]
